FAERS Safety Report 14372467 (Version 3)
Quarter: 2018Q1

REPORT INFORMATION
  Report Type: Report from Study
  Country: CA (occurrence: CA)
  Receive Date: 20180110
  Receipt Date: 20180213
  Transmission Date: 20180509
  Serious: Yes (Death, Hospitalization)
  Sender: FDA-Public Use
  Company Number: CA-ACTELION-A-NJ2017-164518

PATIENT
  Age: 57 Year
  Sex: Female

DRUGS (18)
  1. UPTRAVI [Suspect]
     Active Substance: SELEXIPAG
     Indication: PULMONARY ARTERIAL HYPERTENSION
     Dosage: 1600 MCG, BID
     Route: 048
     Dates: start: 20171106
  2. ASA [Concomitant]
     Active Substance: ASPIRIN
  3. UPTRAVI [Suspect]
     Active Substance: SELEXIPAG
     Dosage: 1400 MCG, UNK
     Route: 048
  4. ADCIRCA [Concomitant]
     Active Substance: TADALAFIL
  5. IRON [Concomitant]
     Active Substance: IRON
  6. RISEDRONATE [Concomitant]
     Active Substance: RISEDRONATE SODIUM
  7. GLICLAZIDE [Concomitant]
     Active Substance: GLICLAZIDE
  8. CALCIUM [Concomitant]
     Active Substance: CALCIUM
  9. FUROSEMIDE. [Concomitant]
     Active Substance: FUROSEMIDE
  10. UPTRAVI [Suspect]
     Active Substance: SELEXIPAG
     Dosage: 1200 MCG, BID
     Route: 048
     Dates: start: 20171106
  11. VITAMIN D [Concomitant]
     Active Substance: CHOLECALCIFEROL
  12. FOLIC ACID. [Concomitant]
     Active Substance: FOLIC ACID
  13. OXYGEN. [Concomitant]
     Active Substance: OXYGEN
     Dosage: UNK
     Dates: end: 201712
  14. TRACLEER [Suspect]
     Active Substance: BOSENTAN
     Indication: PULMONARY ARTERIAL HYPERTENSION
     Dosage: 125 MG, BID
     Route: 048
     Dates: start: 20151109
  15. ONGLYZA [Concomitant]
     Active Substance: SAXAGLIPTIN HYDROCHLORIDE
  16. SPIRONOLACTONE. [Concomitant]
     Active Substance: SPIRONOLACTONE
  17. ALLOPURINOL. [Concomitant]
     Active Substance: ALLOPURINOL
  18. ZAROXOLYN [Concomitant]
     Active Substance: METOLAZONE

REACTIONS (10)
  - Back pain [Not Recovered/Not Resolved]
  - Abdominal pain upper [Not Recovered/Not Resolved]
  - Disease progression [Fatal]
  - Fluid retention [Not Recovered/Not Resolved]
  - Rash [Not Recovered/Not Resolved]
  - Oxygen therapy [Recovered/Resolved]
  - Pulmonary hypertension [Fatal]
  - Flushing [Not Recovered/Not Resolved]
  - Hypotension [Not Recovered/Not Resolved]
  - Erythema [Not Recovered/Not Resolved]

NARRATIVE: CASE EVENT DATE: 20171214
